FAERS Safety Report 4408740-5 (Version None)
Quarter: 2004Q3

REPORT INFORMATION
  Report Type: 
  Country: None (occurrence: None)
  Receive Date: 20040727
  Receipt Date: 20040716
  Transmission Date: 20050211
  Serious: Yes (Life-Threatening, Hospitalization)
  Sender: FDA-Public Use
  Company Number: PHBS2004JP09665

PATIENT
  Age: 55 Year
  Sex: Male

DRUGS (3)
  1. MIKELAN#OT (NVO) [Suspect]
     Indication: OCULAR HYPERTENSION
     Dosage: UNK, BID
     Dates: start: 20030601, end: 20030710
  2. PROPAFENONE HCL [Concomitant]
     Route: 048
  3. VERAPAMIL HYDROCHLORIDE [Concomitant]

REACTIONS (4)
  - ADAMS-STOKES SYNDROME [None]
  - DIZZINESS [None]
  - LOSS OF CONSCIOUSNESS [None]
  - SINUS ARREST [None]
